FAERS Safety Report 6895386 (Version 2)
Quarter: 2014Q3

REPORT INFORMATION
  Report Type: Spontaneous
  Country: IT (occurrence: None)
  Receive Date: 20090121
  Receipt Date: 20140724
  Transmission Date: 20150326
  Serious: Yes (Death)
  Sender: FDA-Public Use
  Company Number: 138420

PATIENT
  Age: 56 Year
  Sex: Male

DRUGS (13)
  1. THALIDOMIDE [Suspect]
     Active Substance: THALIDOMIDE
     Indication: PROSTATE CANCER METASTATIC
     Dosage: 100 MG,
  2. ETOPOSIDE. [Suspect]
     Active Substance: ETOPOSIDE
     Indication: PROSTATE CANCER
  3. EPOGEN [Suspect]
     Active Substance: ERYTHROPOIETIN
     Indication: PROSTATE CANCER METASTATIC
     Dosage: 10 MU, 3 TIMES A WEEK,
  4. ZOLEDRONIC ACID [Concomitant]
     Active Substance: ZOLEDRONIC ACID
  5. ESTRAMUSTINE [Suspect]
     Active Substance: ESTRAMUSTINE
     Indication: PROSTATE CANCER
  6. MITOXANTRONE [Suspect]
     Active Substance: MITOXANTRONE HYDROCHLORIDE
     Indication: PROSTATE CANCER
  7. PACLITAXEL. [Suspect]
     Active Substance: PACLITAXEL
     Indication: PROSTATE CANCER
  8. DEXAMETHASONE (DEXAMETHASONE) [Suspect]
     Active Substance: DEXAMETHASONE
     Indication: PROSTATE CANCER
     Dosage: 16 MG,
  9. (SALICYLATES NOS) [Concomitant]
  10. MORPHINE [Concomitant]
     Active Substance: MORPHINE
  11. CARBOPLATIN (CARBOPLATIN) [Suspect]
     Active Substance: CARBOPLATIN
     Indication: PROSTATE CANCER
  12. BETA BLOCKING AGENTS [Concomitant]
     Active Substance: UNSPECIFIED INGREDIENT
  13. PREDNISONE. [Suspect]
     Active Substance: PREDNISONE
     Indication: PROSTATE CANCER

REACTIONS (8)
  - Renal impairment [None]
  - Disseminated intravascular coagulation [None]
  - Drug ineffective [None]
  - Nervous system disorder [None]
  - Metastases to liver [None]
  - Metastases to bone [None]
  - Performance status decreased [None]
  - Metastases to central nervous system [None]
